FAERS Safety Report 6646641-2 (Version None)
Quarter: 2010Q1

REPORT INFORMATION
  Report Type: 
  Country: None (occurrence: None)
  Receive Date: 20100317
  Receipt Date: 20100304
  Transmission Date: 20100710
  Serious: Yes (Other)
  Sender: FDA-Public Use
  Company Number: 8052775

PATIENT
  Sex: Female
  Weight: 93.4 kg

DRUGS (8)
  1. CERTOLIZUMAB PEGOL [Suspect]
     Indication: RHEUMATOID ARTHRITIS
     Dosage: (- NR OF DOSES :21 SUBCUTANEOUS), (SUBCUTANEOUS)
     Route: 058
     Dates: start: 20080910, end: 20090702
  2. CERTOLIZUMAB PEGOL [Suspect]
     Indication: RHEUMATOID ARTHRITIS
     Dosage: (- NR OF DOSES :21 SUBCUTANEOUS), (SUBCUTANEOUS)
     Route: 058
     Dates: start: 20090716, end: 20090910
  3. PREDNISONE TAB [Concomitant]
  4. LORTAB [Concomitant]
  5. CALCIUM CITRATE W/VITAMIN D NOS [Concomitant]
  6. PRILOSEC [Concomitant]
  7. LISINOPRIL [Concomitant]
  8. ALENDRONATE SODIUM [Concomitant]

REACTIONS (2)
  - LUNG NEOPLASM MALIGNANT [None]
  - OSTEOPENIA [None]
